FAERS Safety Report 10147211 (Version 3)
Quarter: 2014Q2

REPORT INFORMATION
  Report Type: Report from Study
  Country: FR (occurrence: FR)
  Receive Date: 20140501
  Receipt Date: 20140610
  Transmission Date: 20141212
  Serious: Yes (Hospitalization)
  Sender: FDA-Public Use
  Company Number: FR-VERTEX PHARMACEUTICALS INC-2014-002139

PATIENT
  Age: 39 Year
  Sex: Male
  Weight: 58 kg

DRUGS (9)
  1. TELAPREVIR [Suspect]
     Indication: CHRONIC HEPATITIS C
     Dosage: 2250 MG, QD
     Route: 048
     Dates: start: 20140124, end: 20140126
  2. TELAPREVIR [Suspect]
     Dosage: 2250 MG, QD
     Route: 048
     Dates: start: 20140206, end: 20140424
  3. PEGINTERFERON ALFA [Suspect]
     Indication: CHRONIC HEPATITIS C
     Dosage: 180 ?G, QW
     Route: 065
     Dates: start: 20140124, end: 20140126
  4. PEGINTERFERON ALFA [Suspect]
     Dosage: UNK
     Route: 065
  5. RIBAVIRIN [Suspect]
     Indication: CHRONIC HEPATITIS C
     Dosage: 1000 MG, UNK
     Route: 065
     Dates: start: 20140124, end: 20140126
  6. RIBAVIRIN [Suspect]
     Dosage: UNK
     Route: 065
  7. METHADONE [Concomitant]
     Indication: UNEVALUABLE EVENT
     Dosage: UNK
     Route: 065
     Dates: start: 201211
  8. VALIUM [Concomitant]
     Indication: ALCOHOL WITHDRAWAL SYNDROME
     Dosage: UNK
     Route: 065
  9. BIRODOGYL [Concomitant]
     Indication: TOOTH ABSCESS
     Dosage: UNK
     Route: 065
     Dates: start: 20140118, end: 20140126

REACTIONS (1)
  - Rash [Recovered/Resolved]
